FAERS Safety Report 24904176 (Version 1)
Quarter: 2025Q1

REPORT INFORMATION
  Report Type: Spontaneous
  Country: CN (occurrence: CN)
  Receive Date: 20250130
  Receipt Date: 20250130
  Transmission Date: 20250409
  Serious: Yes (Life-Threatening, Hospitalization)
  Sender: BEIGENE
  Company Number: CN-BEIGENE-BGN-2025-001424

PATIENT
  Age: 33 Year
  Weight: 50 kg

DRUGS (11)
  1. TISLELIZUMAB [Suspect]
     Active Substance: TISLELIZUMAB
     Indication: Nasopharyngeal cancer
  2. TISLELIZUMAB [Suspect]
     Active Substance: TISLELIZUMAB
     Indication: Metastases to bone
  3. GEMCITABINE HYDROCHLORIDE [Suspect]
     Active Substance: GEMCITABINE HYDROCHLORIDE
     Indication: Nasopharyngeal cancer
  4. GEMCITABINE HYDROCHLORIDE [Suspect]
     Active Substance: GEMCITABINE HYDROCHLORIDE
     Indication: Metastases to bone
  5. CARBOPLATIN [Suspect]
     Active Substance: CARBOPLATIN
     Indication: Nasopharyngeal cancer
  6. CARBOPLATIN [Suspect]
     Active Substance: CARBOPLATIN
     Indication: Metastases to bone
  7. LEUCOGEN [Concomitant]
     Active Substance: LEUCOGEN
     Indication: Prophylaxis
     Dosage: 20 MILLIGRAM, TID
  8. An tai su [Concomitant]
     Indication: Prophylaxis
     Dosage: 1 GRAM, TID
  9. SODIUM CHLORIDE [Concomitant]
     Active Substance: SODIUM CHLORIDE
     Indication: Vehicle solution use
  10. SODIUM CHLORIDE [Concomitant]
     Active Substance: SODIUM CHLORIDE
  11. DEXTROSE [Concomitant]
     Active Substance: DEXTROSE MONOHYDRATE
     Indication: Vehicle solution use

REACTIONS (1)
  - Myelosuppression [Recovering/Resolving]
